FAERS Safety Report 5586674-0 (Version None)
Quarter: 2008Q1

REPORT INFORMATION
  Report Type: 
  Country: None (occurrence: None)
  Receive Date: 20080110
  Receipt Date: 20071008
  Transmission Date: 20080703
  Serious: No
  Sender: FDA-Public Use
  Company Number: US-BAYER-US-2007-037999

PATIENT
  Age: 41 Year
  Sex: Female
  Weight: 66 kg

DRUGS (3)
  1. YAZ [Suspect]
     Indication: PREMENSTRUAL SYNDROME
     Route: 048
     Dates: start: 20070930
  2. LEXAPRO [Concomitant]
     Dates: start: 20070701
  3. XANAX [Concomitant]
     Dates: start: 20070701

REACTIONS (3)
  - AFFECT LABILITY [None]
  - MENORRHAGIA [None]
  - NIGHT SWEATS [None]
